FAERS Safety Report 9502859 (Version 6)
Quarter: 2014Q2

REPORT INFORMATION
  Report Type: Report from Study
  Country: SE (occurrence: SE)
  Receive Date: 20130906
  Receipt Date: 20140619
  Transmission Date: 20141212
  Serious: Yes (Death)
  Sender: FDA-Public Use
  Company Number: SE-ROCHE-1269269

PATIENT
  Age: 58 Year
  Sex: Male
  Weight: 96.4 kg

DRUGS (9)
  1. VEMURAFENIB [Suspect]
     Indication: METASTATIC MALIGNANT MELANOMA
     Dosage: MOST RECENT DOSE OF VEMURAFENIB PRIOR TO SAE ONSET AUG/2013
     Route: 048
     Dates: start: 20130529
  2. PIOGLITAZONE [Concomitant]
     Indication: DIABETES MELLITUS
     Route: 048
  3. METFORMIN [Concomitant]
     Indication: DIABETES MELLITUS
     Route: 048
  4. GLIPIZID [Concomitant]
     Indication: DIABETES MELLITUS
     Route: 048
     Dates: start: 2012
  5. ENALAPRIL [Concomitant]
     Indication: HYPERTENSION
     Route: 048
  6. OMEPRAZOL [Concomitant]
     Route: 048
     Dates: start: 20120403
  7. PEVISONE (SWEDEN) [Concomitant]
     Indication: RASH
     Route: 061
     Dates: start: 20130822
  8. SIMVASTATIN [Concomitant]
     Indication: HYPERLIPIDAEMIA
     Route: 048
  9. COBIMETINIB [Suspect]
     Indication: METASTATIC MALIGNANT MELANOMA
     Dosage: MOST RECENT DOSE OF BLINDED COBIMETINIB PRIOR TO SAE ONSET : AUG/2013
     Route: 048
     Dates: start: 20130529

REACTIONS (1)
  - Death [Fatal]
